FAERS Safety Report 7289827-9 (Version None)
Quarter: 2011Q1

REPORT INFORMATION
  Report Type: 
  Country: None (occurrence: None)
  Receive Date: 20110214
  Receipt Date: 20110203
  Transmission Date: 20110831
  Serious: No
  Sender: FDA-Public Use
  Company Number: US-BIOGENIDEC-2011BI004360

PATIENT
  Age: 57 Year
  Sex: Female

DRUGS (2)
  1. AVONEX [Suspect]
     Indication: MULTIPLE SCLEROSIS
     Route: 030
     Dates: start: 19990101, end: 20030101
  2. AVONEX [Suspect]
     Route: 030
     Dates: start: 20030101

REACTIONS (10)
  - HEADACHE [None]
  - DIZZINESS [None]
  - URINARY RETENTION [None]
  - GAIT DISTURBANCE [None]
  - URINARY TRACT INFECTION [None]
  - CHEST PAIN [None]
  - VISION BLURRED [None]
  - SENSATION OF FOREIGN BODY [None]
  - INFLUENZA LIKE ILLNESS [None]
  - PRURITUS [None]
